FAERS Safety Report 8484808-1 (Version None)
Quarter: 2012Q3

REPORT INFORMATION
  Report Type: 
  Country: None (occurrence: None)
  Receive Date: 20120703
  Receipt Date: 20120625
  Transmission Date: 20120928
  Serious: Yes (Hospitalization)
  Sender: FDA-Public Use
  Company Number: US-JNJFOC-20120612713

PATIENT
  Sex: Female
  Weight: 58.2 kg

DRUGS (3)
  1. REMICADE [Suspect]
     Route: 042
     Dates: start: 20120501
  2. REMICADE [Suspect]
     Indication: COLITIS ULCERATIVE
     Route: 042
     Dates: start: 20091102
  3. PREDNISONE [Concomitant]

REACTIONS (1)
  - COLITIS ULCERATIVE [None]
